FAERS Safety Report 7047339-1 (Version None)
Quarter: 2010Q4

REPORT INFORMATION
  Report Type: 
  Country: None (occurrence: None)
  Receive Date: 20101015
  Receipt Date: 20101005
  Transmission Date: 20110411
  Serious: Yes (Hospitalization, Other)
  Sender: FDA-Public Use
  Company Number: PHHY2010US66430

PATIENT
  Sex: Male
  Weight: 114.31 kg

DRUGS (1)
  1. EXJADE [Suspect]
     Indication: IRON METABOLISM DISORDER
     Dosage: 2000 MG DAILY
     Route: 048
     Dates: start: 20100421

REACTIONS (1)
  - LOCALISED INFECTION [None]
